FAERS Safety Report 14624976 (Version 1)
Quarter: 2018Q1

REPORT INFORMATION
  Report Type: Spontaneous
  Country: US (occurrence: US)
  Receive Date: 20180312
  Receipt Date: 20180312
  Transmission Date: 20180509
  Serious: No
  Sender: FDA-Public Use
  Company Number: US-BAYER-2018-046680

PATIENT
  Age: 86 Year
  Sex: Female
  Weight: 95 kg

DRUGS (1)
  1. MIRALAX [Suspect]
     Active Substance: POLYETHYLENE GLYCOL 3350
     Indication: GASTROINTESTINAL DISORDER
     Dosage: LESS THAN ONE DOSE, QD
     Route: 048
     Dates: start: 20180202

REACTIONS (2)
  - Product use issue [None]
  - Underdose [Unknown]
